FAERS Safety Report 9946295 (Version 1)
Quarter: 2014Q1

REPORT INFORMATION
  Report Type: Spontaneous
  Country: US (occurrence: US)
  Receive Date: 20140303
  Receipt Date: 20140303
  Transmission Date: 20141002
  Serious: No
  Sender: FDA-Public Use
  Company Number: US-AMGEN-USASP2013091498

PATIENT
  Age: 57 Year
  Sex: Female
  Weight: 90.7 kg

DRUGS (5)
  1. ENBREL [Suspect]
     Indication: PRODUCT USED FOR UNKNOWN INDICATION
     Dosage: 50 MG, ONCE A WEEK
     Route: 058
  2. SYNTHROID [Concomitant]
     Dosage: 50 MCG, UNK
  3. VITAMIN D                          /00107901/ [Concomitant]
     Dosage: 400 UNIT, UNK
  4. CALCIUM [Concomitant]
     Dosage: 500 UNK, UNK
  5. FOLIC ACID [Concomitant]
     Dosage: UNK

REACTIONS (1)
  - Weight increased [Unknown]
